FAERS Safety Report 22060224 (Version 1)
Quarter: 2023Q1

REPORT INFORMATION
  Report Type: Report from Study
  Country: DE (occurrence: DE)
  Receive Date: 20230303
  Receipt Date: 20230303
  Transmission Date: 20230418
  Serious: Yes (Death, Life-Threatening, Hospitalization)
  Sender: FDA-Public Use
  Company Number: DE-JNJFOC-20230260920

PATIENT
  Age: 87 Year
  Weight: 92 kg

DRUGS (4)
  1. TECLISTAMAB [Suspect]
     Active Substance: TECLISTAMAB
     Indication: Plasma cell myeloma
     Dosage: CYCLE-1
     Route: 058
     Dates: start: 20220930
  2. TECLISTAMAB [Suspect]
     Active Substance: TECLISTAMAB
     Dosage: CYCLE-2
     Route: 058
     Dates: start: 20221028
  3. TECLISTAMAB [Suspect]
     Active Substance: TECLISTAMAB
     Dosage: CYCLE-3
     Route: 058
     Dates: start: 20221125
  4. TECLISTAMAB [Suspect]
     Active Substance: TECLISTAMAB
     Dosage: CYCLE-4
     Route: 058
     Dates: start: 20221223

REACTIONS (2)
  - Pneumocystis jirovecii pneumonia [Fatal]
  - Sepsis [Fatal]

NARRATIVE: CASE EVENT DATE: 20230104
